FAERS Safety Report 6865000-0 (Version None)
Quarter: 2010Q3

REPORT INFORMATION
  Report Type: 
  Country: None (occurrence: None)
  Receive Date: 20100721
  Receipt Date: 20080407
  Transmission Date: 20110219
  Serious: No
  Sender: FDA-Public Use
  Company Number: US-PFIZER INC-2008032279

PATIENT
  Sex: Male
  Weight: 88.5 kg

DRUGS (4)
  1. CHANTIX [Suspect]
     Indication: SMOKING CESSATION THERAPY
     Dates: start: 20080325
  2. EFFEXOR [Concomitant]
  3. ACETYLSALICYLIC ACID [Concomitant]
  4. VYTORIN [Concomitant]

REACTIONS (6)
  - DIZZINESS [None]
  - FEELING ABNORMAL [None]
  - FEELING DRUNK [None]
  - FLUSHING [None]
  - NAUSEA [None]
  - VISUAL IMPAIRMENT [None]
